FAERS Safety Report 24890578 (Version 2)
Quarter: 2025Q3

REPORT INFORMATION
  Report Type: Spontaneous
  Country: GB (occurrence: GB)
  Receive Date: 20250127
  Receipt Date: 20250809
  Transmission Date: 20251020
  Serious: Yes (Other)
  Sender: ALEXION PHARMACEUTICALS
  Company Number: GB-MHRA-TPP14184445C21736409YC1737733097340

PATIENT
  Age: 75 Year
  Sex: Female
  Weight: 67 kg

DRUGS (17)
  1. DAPAGLIFLOZIN [Suspect]
     Active Substance: DAPAGLIFLOZIN
     Indication: Ill-defined disorder
  2. CANDESARTAN [Concomitant]
     Active Substance: CANDESARTAN
     Indication: Ill-defined disorder
     Route: 065
  3. BISOPROLOL [Concomitant]
     Active Substance: BISOPROLOL
     Indication: Ill-defined disorder
     Route: 065
  4. CHLORPHENIRAMINE MALEATE [Concomitant]
     Active Substance: CHLORPHENIRAMINE MALEATE
     Indication: Ill-defined disorder
     Route: 065
  5. DOMPERIDONE [Concomitant]
     Active Substance: DOMPERIDONE
     Indication: Ill-defined disorder
     Route: 065
  6. EZETIMIBE [Concomitant]
     Active Substance: EZETIMIBE
     Indication: Ill-defined disorder
     Route: 065
  7. FUROSEMIDE [Concomitant]
     Active Substance: FUROSEMIDE
     Indication: Ill-defined disorder
     Route: 065
  8. FYBOGEL [Concomitant]
     Active Substance: HERBALS\PLANTAGO OVATA SEED
     Indication: Ill-defined disorder
     Route: 065
  9. IVABRADINE [Concomitant]
     Active Substance: IVABRADINE
     Indication: Ill-defined disorder
     Route: 065
  10. FENTANYL [Concomitant]
     Active Substance: FENTANYL
     Indication: Ill-defined disorder
     Route: 065
  11. METFORMIN [Concomitant]
     Active Substance: METFORMIN HYDROCHLORIDE
     Indication: Ill-defined disorder
     Route: 065
  12. MOMETASONE [Concomitant]
     Active Substance: MOMETASONE
     Indication: Ill-defined disorder
     Route: 065
  13. PANTOPRAZOLE [Concomitant]
     Active Substance: PANTOPRAZOLE
     Indication: Ill-defined disorder
     Route: 065
  14. SENNA [Concomitant]
     Active Substance: SENNOSIDES
     Indication: Ill-defined disorder
     Route: 065
  15. SPIRONOLACTONE [Concomitant]
     Active Substance: SPIRONOLACTONE
     Indication: Ill-defined disorder
     Route: 065
  16. VAGIFEM [Concomitant]
     Active Substance: ESTRADIOL
     Indication: Ill-defined disorder
     Route: 065
  17. Zerobase [Concomitant]
     Indication: Ill-defined disorder
     Route: 065

REACTIONS (1)
  - Arrhythmia [Recovered/Resolved]

NARRATIVE: CASE EVENT DATE: 20220921
